FAERS Safety Report 20079101 (Version 1)
Quarter: 2021Q4

REPORT INFORMATION
  Report Type: Spontaneous
  Country: US (occurrence: US)
  Receive Date: 20211117
  Receipt Date: 20211117
  Transmission Date: 20220303
  Serious: Yes (Hospitalization, Other)
  Sender: FDA-Public Use
  Company Number: US-BRISTOL-MYERS SQUIBB COMPANY-BMS-2021-120514

PATIENT
  Age: 77 Year
  Sex: Female

DRUGS (1)
  1. ELIQUIS [Suspect]
     Active Substance: APIXABAN
     Indication: Product used for unknown indication
     Dosage: 5 MILLIGRAM, BID
     Route: 048

REACTIONS (5)
  - Cerebrovascular accident [Unknown]
  - Neoplasm malignant [Unknown]
  - Seizure [Unknown]
  - Urinary incontinence [Unknown]
  - Gastric pH decreased [Unknown]

NARRATIVE: CASE EVENT DATE: 20200101
